FAERS Safety Report 19477377 (Version 1)
Quarter: 2021Q2

REPORT INFORMATION
  Report Type: Spontaneous
  Country: US (occurrence: US)
  Receive Date: 20210630
  Receipt Date: 20210630
  Transmission Date: 20210717
  Serious: Yes (Hospitalization)
  Sender: FDA-Public Use
  Company Number: None

PATIENT
  Age: 74 Year
  Sex: Male
  Weight: 93.4 kg

DRUGS (2)
  1. DASATINIB. [Suspect]
     Active Substance: DASATINIB
  2. PREDNISONE. [Concomitant]
     Active Substance: PREDNISONE

REACTIONS (6)
  - Pneumonia [None]
  - Respiratory failure [None]
  - Streptococcus test positive [None]
  - Sepsis [None]
  - Pseudomonas test positive [None]
  - Febrile neutropenia [None]

NARRATIVE: CASE EVENT DATE: 20210623
